FAERS Safety Report 8800508 (Version 1)
Quarter: 2012Q4

REPORT INFORMATION
  Report Type: 
  Country: DE (occurrence: DE)
  Receive Date: 20120921
  Receipt Date: 20120921
  Transmission Date: 20130627
  Serious: Yes (Hospitalization, Other)
  Sender: FDA-Public Use
  Company Number: PHHO2012DE013230

PATIENT
  Age: 53 Year
  Sex: Male
  Weight: 79.3 kg

DRUGS (2)
  1. FTY 720 [Suspect]
     Indication: RELAPSING-REMITTING MULTIPLE SCLEROSIS
     Dosage: 0.5 mg, UNK
     Dates: start: 20120102
  2. METHYLPREDNISOLONE [Suspect]

REACTIONS (3)
  - Phlebitis [Recovered/Resolved]
  - Multiple sclerosis relapse [Recovered/Resolved]
  - Joint abscess [None]
